FAERS Safety Report 10488177 (Version 2)
Quarter: 2014Q4

REPORT INFORMATION
  Report Type: Spontaneous
  Country: US (occurrence: US)
  Receive Date: 20141002
  Receipt Date: 20141002
  Transmission Date: 20150528
  Serious: Yes (Other)
  Sender: FDA-Public Use
  Company Number: US-TEVA-461938USA

PATIENT
  Sex: Male

DRUGS (1)
  1. EPITOL [Suspect]
     Active Substance: CARBAMAZEPINE
     Indication: SEIZURE
     Dates: start: 20140102

REACTIONS (2)
  - Seizure like phenomena [Unknown]
  - Drug ineffective [Unknown]

NARRATIVE: CASE EVENT DATE: 2014
